FAERS Safety Report 6572414-5 (Version None)
Quarter: 2010Q1

REPORT INFORMATION
  Report Type: 
  Country: None (occurrence: None)
  Receive Date: 20100205
  Receipt Date: 20100125
  Transmission Date: 20100710
  Serious: Yes (Hospitalization)
  Sender: FDA-Public Use
  Company Number: US-ELI_LILLY_AND_COMPANY-US200912001214

PATIENT
  Age: 44 Year
  Sex: Female
  Weight: 87.2 kg

DRUGS (9)
  1. GEMCITABINE HCL [Suspect]
     Indication: BREAST CANCER
     Dosage: UNK, OTHER
     Route: 042
     Dates: start: 20090813, end: 20091209
  2. BEVACIZUMAB [Suspect]
     Indication: BREAST CANCER
     Dosage: 1310 MG, OTHER
     Route: 042
     Dates: start: 20090813, end: 20091209
  3. PACLITAXEL [Suspect]
     Indication: BREAST CANCER
     Dosage: UNK, OTHER
     Route: 042
     Dates: start: 20090813, end: 20091209
  4. CIPROFLAXACIN [Concomitant]
  5. VANCOMYCIN [Concomitant]
  6. VFEND [Concomitant]
  7. VICODIN [Concomitant]
  8. ZOSYN [Concomitant]
  9. GADOLINIUM [Concomitant]
     Indication: NUCLEAR MAGNETIC RESONANCE IMAGING

REACTIONS (3)
  - FISTULA [None]
  - RENAL FAILURE [None]
  - STREPTOCOCCAL INFECTION [None]
